FAERS Safety Report 7798031-7 (Version None)
Quarter: 2011Q4

REPORT INFORMATION
  Report Type: 
  Country: None (occurrence: None)
  Receive Date: 20111005
  Receipt Date: 20110923
  Transmission Date: 20120403
  Serious: Yes (Hospitalization)
  Sender: FDA-Public Use
  Company Number: US-ELI_LILLY_AND_COMPANY-US201107004260

PATIENT
  Sex: Female

DRUGS (21)
  1. CALCIFEROL [Concomitant]
     Dosage: 50000 MG, WEEKLY (1/W)
  2. NORCO [Concomitant]
     Dosage: UNK, TID
  3. MUCINEX [Concomitant]
     Dosage: UNK, BID
  4. FORTEO [Suspect]
     Dosage: 20 UG, QD
     Route: 065
  5. CALCIUM CARBONATE [Concomitant]
     Dosage: UNK UNK, QD
  6. FAMOTIDINE [Concomitant]
     Dosage: UNK, QD
  7. PEPCID [Concomitant]
  8. DURAGESIC-100 [Concomitant]
     Dosage: 75 UG, UNK
  9. ROBAXIN [Concomitant]
     Dosage: 500 MG, TID
  10. LIDODERM [Concomitant]
  11. SENOKOT [Concomitant]
     Indication: CONSTIPATION
  12. BENEFIBER [Concomitant]
     Indication: CONSTIPATION
  13. LEVAQUIN [Concomitant]
     Dosage: UNK, QD
  14. FORTEO [Suspect]
     Indication: OSTEOPOROSIS
     Dosage: 20 UG, QD
     Route: 065
     Dates: start: 20110601
  15. VITAMIN D [Concomitant]
  16. FENTANYL [Concomitant]
  17. ESTROTEST [Concomitant]
     Dosage: UNK, QD
  18. ROBAXIN [Concomitant]
     Dosage: 1000 MG, TID
  19. PROAIR HFA [Concomitant]
     Dosage: UNK, 4/W
  20. VITAMIN B-12 [Concomitant]
     Dosage: 1000 UG, MONTHLY (1/M)
  21. ENSURE                             /06184901/ [Concomitant]
     Dosage: UNK, PRN

REACTIONS (6)
  - PAIN [None]
  - BLOOD POTASSIUM DECREASED [None]
  - WEIGHT BEARING DIFFICULTY [None]
  - BRONCHITIS [None]
  - BONE PAIN [None]
  - DIZZINESS [None]
